FAERS Safety Report 5294843-2 (Version None)
Quarter: 2007Q2

REPORT INFORMATION
  Report Type: 
  Country: None (occurrence: None)
  Receive Date: 20070412
  Receipt Date: 20070405
  Transmission Date: 20071010
  Serious: Yes (Death)
  Sender: FDA-Public Use
  Company Number: HQWYE138104DEC06

PATIENT
  Sex: Male
  Weight: 72.19 kg

DRUGS (8)
  1. EFFEXOR XR [Suspect]
     Indication: ATTENTION DEFICIT/HYPERACTIVITY DISORDER
  2. SYNTHROID [Concomitant]
     Dosage: 88 MCG DAILY
     Route: 048
  3. RITALIN - SLOW RELEASE [Concomitant]
     Indication: ATTENTION DEFICIT/HYPERACTIVITY DISORDER
     Route: 048
  4. FLOVENT [Concomitant]
     Dosage: UNKNOWN
     Route: 045
  5. NASONEX [Concomitant]
     Dosage: UNKNOWN
  6. CONCERTA [Concomitant]
     Dosage: 36 MG EVERY MORNING
     Route: 048
     Dates: start: 20020601, end: 20031026
  7. CONCERTA [Concomitant]
     Dates: start: 20031027
  8. ALBUTEROL [Concomitant]
     Dosage: UNKNOWN
     Route: 045

REACTIONS (4)
  - COMPLETED SUICIDE [None]
  - DRUG WITHDRAWAL SYNDROME [None]
  - FEELING ABNORMAL [None]
  - INTENTIONAL DRUG MISUSE [None]
